FAERS Safety Report 23212992 (Version 1)
Quarter: 2023Q4

REPORT INFORMATION
  Report Type: Spontaneous
  Country: IL (occurrence: IL)
  Receive Date: 20231121
  Receipt Date: 20231121
  Transmission Date: 20240109
  Serious: Yes (Hospitalization)
  Sender: FDA-Public Use
  Company Number: IL-FreseniusKabi-FK202318552

PATIENT
  Age: 9 Year
  Sex: Female

DRUGS (1)
  1. SMOFLIPID [Suspect]
     Active Substance: FISH OIL\MEDIUM-CHAIN TRIGLYCERIDES\OLIVE OIL\SOYBEAN OIL
     Indication: Product used for unknown indication
     Dosage: TREATMENT ONGOING

REACTIONS (2)
  - Vascular device infection [Recovered/Resolved]
  - Acidosis [Recovered/Resolved]

NARRATIVE: CASE EVENT DATE: 20230928
